FAERS Safety Report 8513673-9 (Version None)
Quarter: 2012Q3

REPORT INFORMATION
  Report Type: 
  Country: None (occurrence: None)
  Receive Date: 20120717
  Receipt Date: 20120705
  Transmission Date: 20120928
  Serious: Yes (Disabling, Other)
  Sender: FDA-Public Use
  Company Number: BR-ELI_LILLY_AND_COMPANY-BR201207001880

PATIENT
  Sex: Male

DRUGS (8)
  1. SEROQUEL [Concomitant]
     Indication: ANXIETY
     Dosage: UNK, UNKNOWN
     Route: 065
  2. LEXAPRO [Concomitant]
     Indication: ANXIETY
     Dosage: UNK, UNKNOWN
     Route: 065
  3. HUMULIN N [Suspect]
     Dosage: 26 IU, EACH MORNING
     Route: 065
  4. HUMULIN N [Suspect]
     Dosage: 40 IU, EACH MORNING
     Route: 065
     Dates: start: 19920101
  5. HUMULIN N [Suspect]
     Dosage: 4 IU, EACH EVENING
     Route: 065
  6. LOSARTAN POTASSIUM [Concomitant]
     Indication: HYPERTENSION
     Dosage: UNK, UNKNOWN
     Route: 065
  7. HUMULIN N [Suspect]
     Dosage: 20 IU, EACH EVENING
     Route: 065
  8. ASPIRIN [Concomitant]
     Dosage: UNK, UNKNOWN
     Route: 065

REACTIONS (11)
  - BLINDNESS [None]
  - RENAL IMPAIRMENT [None]
  - HYPOGLYCAEMIA [None]
  - GLAUCOMA [None]
  - DIABETIC NEUROPATHY [None]
  - EYE DISORDER [None]
  - VOMITING [None]
  - BLOOD GLUCOSE INCREASED [None]
  - NEPHROLITHIASIS [None]
  - DIARRHOEA [None]
  - NERVOUSNESS [None]
